FAERS Safety Report 8545238-7 (Version None)
Quarter: 2012Q3

REPORT INFORMATION
  Report Type: 
  Country: None (occurrence: None)
  Receive Date: 20120727
  Receipt Date: 20120724
  Transmission Date: 20120928
  Serious: Yes (Other)
  Sender: FDA-Public Use
  Company Number: US-CELGENEUS-163-21880-12072777

PATIENT
  Sex: Female

DRUGS (2)
  1. VELCADE [Concomitant]
     Route: 065
  2. REVLIMID [Suspect]
     Indication: MULTIPLE MYELOMA
     Dosage: 25 MILLIGRAM
     Route: 048
     Dates: start: 20080115

REACTIONS (3)
  - SPINAL COLUMN STENOSIS [None]
  - NEUROPATHY PERIPHERAL [None]
  - MULTIPLE MYELOMA [None]
